FAERS Safety Report 18945475 (Version 1)
Quarter: 2021Q1

REPORT INFORMATION
  Report Type: Spontaneous
  Country: CO (occurrence: CO)
  Receive Date: 20210226
  Receipt Date: 20210226
  Transmission Date: 20210420
  Serious: Yes (Other)
  Sender: FDA-Public Use
  Company Number: CO-BAYER-2021-080545

PATIENT
  Age: 63 Year
  Sex: Male
  Weight: 77 kg

DRUGS (1)
  1. ULTRAVIST [Suspect]
     Active Substance: IOPROMIDE
     Indication: COMPUTERISED TOMOGRAM THORAX
     Dosage: 77 UNK, ONCE,3.0
     Route: 042
     Dates: start: 20210219, end: 20210219

REACTIONS (3)
  - Chest discomfort [Recovered/Resolved with Sequelae]
  - Cheilitis [Recovered/Resolved with Sequelae]
  - Face oedema [Recovered/Resolved with Sequelae]

NARRATIVE: CASE EVENT DATE: 20210219
